FAERS Safety Report 9094029 (Version 1)
Quarter: 2013Q1

REPORT INFORMATION
  Report Type: Spontaneous
  Country: US (occurrence: None)
  Receive Date: 20130122
  Receipt Date: 20130122
  Transmission Date: 20140127
  Serious: Yes (Death)
  Sender: FDA-Public Use
  Company Number: DSA_61962_2013

PATIENT
  Age: 47 Year
  Sex: Female

DRUGS (8)
  1. DILTIAZEM HYDROCHLORIDE [Suspect]
     Indication: PRODUCT USED FOR UNKNOWN INDICATION
     Route: 048
  2. LISINOPRIL [Suspect]
  3. GABAPENTIN [Suspect]
     Route: 048
  4. CITALOPRAM [Suspect]
     Route: 048
  5. TRAZODONE [Suspect]
     Route: 048
  6. DEXTROAMPHETAMINE [Suspect]
     Route: 048
  7. IRON [Suspect]
  8. MODAFINIL [Suspect]
     Route: 048

REACTIONS (2)
  - Adverse reaction [None]
  - Toxicity to various agents [None]
